FAERS Safety Report 19801975 (Version 1)
Quarter: 2021Q3

REPORT INFORMATION
  Report Type: Spontaneous
  Country: US (occurrence: US)
  Receive Date: 20210908
  Receipt Date: 20210908
  Transmission Date: 20211014
  Serious: Yes (Other)
  Sender: FDA-Public Use
  Company Number: US-SA-2021SA293404

PATIENT
  Age: 26 Year
  Sex: Female

DRUGS (2)
  1. ZANTAC [Suspect]
     Active Substance: RANITIDINE HYDROCHLORIDE
     Indication: DYSPEPSIA
     Dosage: UNK, QD
     Dates: start: 200201, end: 201801
  2. ZANTAC [Suspect]
     Active Substance: RANITIDINE HYDROCHLORIDE
     Indication: GASTROOESOPHAGEAL REFLUX DISEASE

REACTIONS (7)
  - Appendix cancer [Unknown]
  - Gastric cancer [Unknown]
  - Brain neoplasm malignant [Unknown]
  - Cervix carcinoma [Unknown]
  - Ovarian cancer [Unknown]
  - Gallbladder cancer [Unknown]
  - Uterine cancer [Unknown]

NARRATIVE: CASE EVENT DATE: 20041101
